FAERS Safety Report 9599482 (Version 2)
Quarter: 2013Q4

REPORT INFORMATION
  Report Type: Spontaneous
  Country: US (occurrence: US)
  Receive Date: 20131004
  Receipt Date: 20131004
  Transmission Date: 20140711
  Serious: No
  Sender: FDA-Public Use
  Company Number: US-AMGEN-USASP2013026142

PATIENT
  Age: 63 Year
  Sex: Female
  Weight: 50.79 kg

DRUGS (9)
  1. ENBREL [Suspect]
     Indication: PRODUCT USED FOR UNKNOWN INDICATION
     Dosage: 50 MG, QWK
     Route: 058
  2. REMICADE [Suspect]
     Dosage: UNK
  3. HUMIRA [Concomitant]
     Dosage: UNK
  4. VITAMIN K                          /00032401/ [Concomitant]
     Dosage: 100 MUG, UNK
  5. VITAMIN D                          /00107901/ [Concomitant]
     Dosage: 1000 UNIT, UNK
  6. CALCIUM [Concomitant]
     Dosage: 500 UNK, UNK
  7. SYNTHROID [Concomitant]
     Dosage: 88 MUG, UNK
  8. MIDODRINE [Concomitant]
     Dosage: 2.5 MG, UNK
  9. NUCYNTA [Concomitant]
     Dosage: 50 MG, UNK

REACTIONS (12)
  - Drug intolerance [Unknown]
  - Arthralgia [Unknown]
  - Joint swelling [Unknown]
  - Adverse reaction [Unknown]
  - Synovial cyst [Unknown]
  - Wheezing [Unknown]
  - Dyspnoea [Unknown]
  - Cough [Unknown]
  - Headache [Unknown]
  - Chronic obstructive pulmonary disease [Unknown]
  - Pertussis [Unknown]
  - Sinusitis [Unknown]
